FAERS Safety Report 22391203 (Version 1)
Quarter: 2023Q2

REPORT INFORMATION
  Report Type: Spontaneous
  Country: EC (occurrence: EC)
  Receive Date: 20230601
  Receipt Date: 20230601
  Transmission Date: 20230722
  Serious: Yes (Death, Hospitalization)
  Sender: FDA-Public Use
  Company Number: EC-STRIDES ARCOLAB LIMITED-2023SP007886

PATIENT
  Age: 63 Year
  Sex: Male

DRUGS (2)
  1. METHOTREXATE [Suspect]
     Active Substance: METHOTREXATE
     Indication: Still^s disease
     Dosage: UNK, CYCLICAL, 2 CYCLES
     Route: 065
  2. ETANERCEPT [Suspect]
     Active Substance: ETANERCEPT
     Indication: Still^s disease
     Dosage: UNK, CYCLICAL, 2 CYCLES
     Route: 065

REACTIONS (6)
  - Multiple organ dysfunction syndrome [Fatal]
  - Ileus paralytic [Fatal]
  - Brain abscess [Fatal]
  - Nocardiosis [Fatal]
  - Tuberculosis [Unknown]
  - Off label use [Unknown]
